FAERS Safety Report 15531257 (Version 1)
Quarter: 2018Q4

REPORT INFORMATION
  Report Type: Spontaneous
  Country: FR (occurrence: FR)
  Receive Date: 20181019
  Receipt Date: 20181019
  Transmission Date: 20190205
  Serious: Yes (Hospitalization)
  Sender: FDA-Public Use
  Company Number: FR-TEVA-2018-FR-965854

PATIENT
  Age: 11 Year
  Sex: Female
  Weight: 37.2 kg

DRUGS (2)
  1. AMOXICILLINE [Concomitant]
     Active Substance: AMOXICILLIN
     Route: 048
     Dates: start: 20180712, end: 20180717
  2. IBUPROFENE [Suspect]
     Active Substance: IBUPROFEN
     Indication: LARYNGITIS
     Route: 048
     Dates: start: 20180712, end: 20180717

REACTIONS (2)
  - Radiculopathy [Recovering/Resolving]
  - Infection [Recovering/Resolving]

NARRATIVE: CASE EVENT DATE: 20180718
